FAERS Safety Report 21894211 (Version 1)
Quarter: 2023Q1

REPORT INFORMATION
  Report Type: Spontaneous
  Country: ES (occurrence: ES)
  Receive Date: 20230121
  Receipt Date: 20230121
  Transmission Date: 20230417
  Serious: Yes (Hospitalization, Other)
  Sender: FDA-Public Use
  Company Number: ES-AEMPS-1315839

PATIENT
  Age: 64 Year
  Sex: Female
  Weight: 60 kg

DRUGS (3)
  1. AMOXICILLIN\CLAVULANIC ACID [Suspect]
     Active Substance: AMOXICILLIN\CLAVULANIC ACID
     Indication: Skin infection
     Dosage: 1 DOSAGE FORM, TWO TIMES A DAY (1 EVERY 12 HOURS FOR 7 DAYS)
     Route: 048
     Dates: start: 20220602, end: 20220608
  2. CYCLOPHOSPHAMIDE [Concomitant]
     Active Substance: CYCLOPHOSPHAMIDE
     Indication: Breast cancer
     Dosage: 904 MILLIGRAM TOTAL  (SINGLE DOSE)
     Route: 042
     Dates: start: 20220608
  3. DOXORUBICIN [Concomitant]
     Active Substance: DOXORUBICIN
     Indication: Breast cancer
     Dosage: 90 MILLIGRAM TOTAL (SINGLE DOSE)
     Route: 042
     Dates: start: 20220608, end: 20220608

REACTIONS (1)
  - Clostridium difficile colitis [Recovered/Resolved]

NARRATIVE: CASE EVENT DATE: 20220610
